FAERS Safety Report 4636416-8 (Version None)
Quarter: 2005Q2

REPORT INFORMATION
  Report Type: 
  Country: None (occurrence: None)
  Receive Date: 20050413
  Receipt Date: 20050413
  Transmission Date: 20051028
  Serious: Yes (Hospitalization)
  Sender: FDA-Public Use
  Company Number: None

PATIENT
  Age: 93 Year
  Sex: Female
  Weight: 45.2 kg

DRUGS (2)
  1. AMIODARONE     150MG/3ML [Suspect]
     Indication: ATRIAL FIBRILLATION
     Dates: start: 20050107, end: 20050112
  2. AMIODARONE   200MG [Suspect]
     Indication: ATRIAL FIBRILLATION
     Dosage: 200MG  BID  ORAL
     Route: 048
     Dates: start: 20050109, end: 20050110

REACTIONS (4)
  - CONDITION AGGRAVATED [None]
  - HYPOXIA [None]
  - LUNG INFILTRATION [None]
  - LUNG INJURY [None]
